FAERS Safety Report 8797454 (Version 1)
Quarter: 2012Q4

REPORT INFORMATION
  Report Type: 
  Country: US (occurrence: US)
  Receive Date: 20120920
  Receipt Date: 20120920
  Transmission Date: 20130627
  Serious: Yes (Other)
  Sender: FDA-Public Use
  Company Number: US-UCBSA-066184

PATIENT

DRUGS (1)
  1. VIMPAT [Suspect]

REACTIONS (1)
  - Pancreatitis [Unknown]
